FAERS Safety Report 6143990-1 (Version None)
Quarter: 2009Q2

REPORT INFORMATION
  Report Type: 
  Country: None (occurrence: None)
  Receive Date: 20090406
  Receipt Date: 20090325
  Transmission Date: 20091009
  Serious: Yes (Other)
  Sender: FDA-Public Use
  Company Number: GB-JNJFOC-20090400738

PATIENT
  Age: 69 Year
  Sex: Female
  Weight: 77 kg

DRUGS (8)
  1. TRAMADOL HYDROCHLORIDE [Suspect]
     Indication: SPINAL OSTEOARTHRITIS
     Route: 048
     Dates: start: 20090218, end: 20090219
  2. TRAMADOL HYDROCHLORIDE [Suspect]
     Indication: OSTEOARTHRITIS
     Route: 048
     Dates: start: 20090218, end: 20090219
  3. GLIPIZIDE [Concomitant]
     Route: 065
  4. IPRATROPIUM BROMIDE [Concomitant]
     Route: 065
  5. LANSOPRAZOLE [Concomitant]
     Route: 065
  6. LISINOPRIL [Concomitant]
     Route: 065
  7. SALBUTAMOL [Concomitant]
     Route: 065
  8. SERETIDE [Concomitant]
     Route: 065

REACTIONS (4)
  - ARTHRALGIA [None]
  - HEADACHE [None]
  - INSOMNIA [None]
  - JOINT SWELLING [None]
